FAERS Safety Report 21922365 (Version 38)
Quarter: 2025Q4

REPORT INFORMATION
  Report Type: Spontaneous
  Country: CA (occurrence: CA)
  Receive Date: 20230128
  Receipt Date: 20251008
  Transmission Date: 20260118
  Serious: Yes (Hospitalization, Other)
  Sender: CELLTRION
  Company Number: CA-CELLTRION INC.-2022CA010777

PATIENT

DRUGS (54)
  1. INFLECTRA [Suspect]
     Active Substance: INFLIXIMAB-DYYB
     Indication: Colitis ulcerative
     Dosage: 12 MG/KG 0, 2, 6 THEN EVERY 4 WEEKS
     Route: 042
     Dates: start: 20220311
  2. INFLECTRA [Suspect]
     Active Substance: INFLIXIMAB-DYYB
     Dosage: 10 MG/KG, 0, 2, 6 THEN EVERY 8 WEEKS
     Route: 042
     Dates: start: 20220616
  3. INFLECTRA [Suspect]
     Active Substance: INFLIXIMAB-DYYB
     Dosage: 10 MG/KG, 0, 2, 6 THEN EVERY 8 WEEKS
     Route: 042
     Dates: start: 20220629
  4. INFLECTRA [Suspect]
     Active Substance: INFLIXIMAB-DYYB
     Dosage: 10 MG/KG, 0, 2, 6 THEN EVERY 8 WEEKS
     Route: 042
     Dates: start: 20220727
  5. INFLECTRA [Suspect]
     Active Substance: INFLIXIMAB-DYYB
     Dosage: 10 MG/KG, 0, 2, 6 THEN EVERY 8 WEEKS
     Route: 042
     Dates: start: 20220922
  6. INFLECTRA [Suspect]
     Active Substance: INFLIXIMAB-DYYB
     Dosage: 10 MG/KG, EVERY 4 WEEKS
     Route: 042
     Dates: start: 20221025
  7. INFLECTRA [Suspect]
     Active Substance: INFLIXIMAB-DYYB
     Dosage: 10 MG/KG, EVERY 4 WEEKS
     Route: 042
     Dates: start: 20221124
  8. INFLECTRA [Suspect]
     Active Substance: INFLIXIMAB-DYYB
     Dosage: 10 MG/KG, EVERY 4 WEEKS
     Route: 042
     Dates: start: 20221222
  9. INFLECTRA [Suspect]
     Active Substance: INFLIXIMAB-DYYB
     Dosage: 10 MG/KG, EVERY 4 WEEKS
     Route: 042
     Dates: start: 20230119
  10. INFLECTRA [Suspect]
     Active Substance: INFLIXIMAB-DYYB
     Dosage: 10 MG/KG, EVERY 4 WEEKS
     Route: 042
     Dates: start: 20230215
  11. INFLECTRA [Suspect]
     Active Substance: INFLIXIMAB-DYYB
     Dosage: 12 MG/KG, 0, 2, 6 THEN EVERY 4 WEEKS (RE-INDUCTION)
     Route: 042
     Dates: start: 20230311
  12. INFLECTRA [Suspect]
     Active Substance: INFLIXIMAB-DYYB
     Dosage: 780 MG (12 MG/KG), ON WEEK 2 REINDUCTION
     Route: 042
     Dates: start: 20230327
  13. INFLECTRA [Suspect]
     Active Substance: INFLIXIMAB-DYYB
     Dosage: 800 MG (12 MG/KG), WEEK 6 REINDUCTION
     Route: 042
     Dates: start: 20230424
  14. INFLECTRA [Suspect]
     Active Substance: INFLIXIMAB-DYYB
     Dosage: 864 MG, EVERY 4 WEEKS
     Route: 042
     Dates: start: 20230523
  15. INFLECTRA [Suspect]
     Active Substance: INFLIXIMAB-DYYB
     Dosage: 852 MG (12 MG/KG), EVERY 4 WEEKS
     Route: 042
     Dates: start: 20230622
  16. INFLECTRA [Suspect]
     Active Substance: INFLIXIMAB-DYYB
     Dosage: 816 MG, EVERY 4 WEEKS (AFTER 6 WEEKS AND 1 DAY)
     Route: 042
     Dates: start: 20230804
  17. INFLECTRA [Suspect]
     Active Substance: INFLIXIMAB-DYYB
     Dosage: 806 MG (12 MG/KG) EVERY 4 WEEKS
     Route: 042
     Dates: start: 20230901
  18. INFLECTRA [Suspect]
     Active Substance: INFLIXIMAB-DYYB
     Dosage: 806 MG (12 MG/KG) EVERY 4 WEEKS
     Route: 042
     Dates: start: 20230901
  19. INFLECTRA [Suspect]
     Active Substance: INFLIXIMAB-DYYB
     Dosage: 852 MG (12 MG/KG), EVERY 4 WEEKS
     Route: 042
     Dates: start: 20230927
  20. INFLECTRA [Suspect]
     Active Substance: INFLIXIMAB-DYYB
     Dosage: 876 MG (12 MG/KG), EVERY 4 WEEKS
     Route: 042
     Dates: start: 20231025
  21. INFLECTRA [Suspect]
     Active Substance: INFLIXIMAB-DYYB
     Dosage: 888 MG, EVERY 4 WEEKS
     Route: 042
     Dates: start: 20231122
  22. INFLECTRA [Suspect]
     Active Substance: INFLIXIMAB-DYYB
     Dosage: 864 MG, EVERY 4 WEEKS
     Route: 042
     Dates: start: 20231220
  23. INFLECTRA [Suspect]
     Active Substance: INFLIXIMAB-DYYB
     Dosage: 12 MG/KG, EVERY 4 WEEKS (W0,2,6)
     Route: 042
     Dates: start: 20240109
  24. INFLECTRA [Suspect]
     Active Substance: INFLIXIMAB-DYYB
     Dosage: 900 MG (12 MG/KG), EVERY 4 WEEKS
     Route: 042
     Dates: start: 20240117
  25. INFLECTRA [Suspect]
     Active Substance: INFLIXIMAB-DYYB
     Dosage: 900 MG (12 MG/KG), EVERY 4 WEEKS (AFTER 4 WEEKS AND 5 DAYS)
     Route: 042
     Dates: start: 20240219
  26. INFLECTRA [Suspect]
     Active Substance: INFLIXIMAB-DYYB
     Dosage: 900 MG (12 MG/KG), EVERY 4 WEEKS
     Route: 042
     Dates: start: 20240318
  27. INFLECTRA [Suspect]
     Active Substance: INFLIXIMAB-DYYB
     Dosage: 900 MG (12 MG/KG), EVERY 4 WEEKS
     Route: 042
     Dates: start: 20240415
  28. INFLECTRA [Suspect]
     Active Substance: INFLIXIMAB-DYYB
     Dosage: 900 MG, EVERY 4 WEEKS
     Route: 042
     Dates: start: 20240514
  29. INFLECTRA [Suspect]
     Active Substance: INFLIXIMAB-DYYB
     Dosage: 876 MG (12 MG/KG), EVERY 4 WEEKS (AFTER 4 WEEKS AND 3 DAYS)
     Route: 042
     Dates: start: 20240614
  30. INFLECTRA [Suspect]
     Active Substance: INFLIXIMAB-DYYB
     Dosage: 900 MG (12 MG/KG), EVERY 4 WEEKS
     Route: 042
     Dates: start: 20240715
  31. INFLECTRA [Suspect]
     Active Substance: INFLIXIMAB-DYYB
     Dosage: 12 MG/KG, EVERY 4 WEEKS
     Route: 042
     Dates: start: 20240816
  32. INFLECTRA [Suspect]
     Active Substance: INFLIXIMAB-DYYB
     Dosage: 12 MG/KG, EVERY 4 WEEKS (WEEKS 0,2,6 THEN Q 4 WEEKS)
     Route: 042
     Dates: start: 20240919
  33. INFLECTRA [Suspect]
     Active Substance: INFLIXIMAB-DYYB
     Dosage: 12 MG/KG, 0, 2, 6 THEN EVERY 4 WEEKS (WEEK 0 REINDUCTION)
     Route: 042
     Dates: start: 20250109
  34. INFLECTRA [Suspect]
     Active Substance: INFLIXIMAB-DYYB
     Dosage: 698 MG, EVERY 4 WEEKS (WEEK 2 REINDUCTION)
     Route: 042
     Dates: start: 20250124
  35. INFLECTRA [Suspect]
     Active Substance: INFLIXIMAB-DYYB
     Dosage: 732 MG (12 MG/KG), EVERY 4 WEEKS (WEEK 6 REINDUCTION, AFTER 3 WEEKS AND 6 DAYS)
     Route: 042
     Dates: start: 20250220
  36. INFLECTRA [Suspect]
     Active Substance: INFLIXIMAB-DYYB
     Dosage: 732 MG (12 MG/KG), EVERY 4 WEEKS (WEEK 6 REINDUCTION, AFTER 3 WEEKS AND 6 DAYS)
     Route: 042
     Dates: start: 20250220
  37. INFLECTRA [Suspect]
     Active Substance: INFLIXIMAB-DYYB
     Dosage: 1000 MG, STAT DOSE AT WEEK 8 THEN EVERY 4 WEEKS (AFTER 2 WEEKS AND 1 DAY)
     Route: 042
     Dates: start: 20250307
  38. INFLECTRA [Suspect]
     Active Substance: INFLIXIMAB-DYYB
     Dosage: 1000 MG, EVERY 4 WEEKS
     Route: 042
     Dates: start: 20250407
  39. INFLECTRA [Suspect]
     Active Substance: INFLIXIMAB-DYYB
     Dosage: 1000 MG, EVERY 4 WEEKS
     Route: 042
     Dates: start: 20250506, end: 2025
  40. CIPROFLOXACIN [Suspect]
     Active Substance: CIPROFLOXACIN
     Dosage: UNK
  41. AZATHIOPRINE [Concomitant]
     Active Substance: AZATHIOPRINE
     Dosage: 125 MG
  42. AZATHIOPRINE [Concomitant]
     Active Substance: AZATHIOPRINE
     Dosage: 125 MG
     Dates: start: 20230320
  43. AZATHIOPRINE [Concomitant]
     Active Substance: AZATHIOPRINE
     Dosage: UNK
     Dates: start: 20250109
  44. CALCIUM [Concomitant]
     Active Substance: CALCIUM
     Dosage: 500 MG
  45. IRON [Concomitant]
     Active Substance: IRON
     Dosage: 1 DF
  46. IMURAN [Concomitant]
     Active Substance: AZATHIOPRINE
     Dosage: 1 DF
     Dates: start: 20230311
  47. METRONIDAZOLE [Concomitant]
     Active Substance: METRONIDAZOLE
     Dosage: UNK
  48. NIFEDIPINE [Concomitant]
     Active Substance: NIFEDIPINE
     Dosage: 1 DF
  49. PREDNISONE [Concomitant]
     Active Substance: PREDNISONE
     Dosage: 1 DF
     Route: 065
  50. PREDNISONE [Concomitant]
     Active Substance: PREDNISONE
     Dosage: 30 MG
  51. PREDNISONE [Concomitant]
     Active Substance: PREDNISONE
     Dosage: 30 MG
     Dates: start: 20230315
  52. TESTOSTERONE [Concomitant]
     Active Substance: TESTOSTERONE
     Dosage: 125 MG
  53. CHOLECALCIFEROL [Concomitant]
     Active Substance: CHOLECALCIFEROL
     Dosage: 10000 IU
  54. XYLOCAINE [Concomitant]
     Active Substance: LIDOCAINE HYDROCHLORIDE
     Dosage: 1 DF

REACTIONS (34)
  - Fistula [Recovering/Resolving]
  - Anal fissure [Recovered/Resolved]
  - Anal fistula [Recovering/Resolving]
  - Abscess [Recovered/Resolved]
  - Rectal abscess [Recovering/Resolving]
  - Condition aggravated [Recovered/Resolved]
  - Anal haemorrhage [Not Recovered/Not Resolved]
  - Proctalgia [Not Recovered/Not Resolved]
  - Mucous stools [Not Recovered/Not Resolved]
  - Neuropathy peripheral [Recovering/Resolving]
  - Therapeutic response shortened [Unknown]
  - Drug level decreased [Unknown]
  - Weight decreased [Unknown]
  - Flatulence [Not Recovered/Not Resolved]
  - Erythema nodosum [Not Recovered/Not Resolved]
  - Stress [Not Recovered/Not Resolved]
  - Malaise [Unknown]
  - Anxiety [Recovered/Resolved]
  - Lymphadenopathy [Not Recovered/Not Resolved]
  - Fatigue [Not Recovered/Not Resolved]
  - Pain [Not Recovered/Not Resolved]
  - Pyrexia [Recovered/Resolved]
  - Nausea [Recovered/Resolved]
  - Asthenia [Unknown]
  - Decreased appetite [Unknown]
  - Loss of personal independence in daily activities [Unknown]
  - Poor quality sleep [Not Recovered/Not Resolved]
  - Gastrooesophageal reflux disease [Unknown]
  - Abdominal pain upper [Unknown]
  - Nasopharyngitis [Recovering/Resolving]
  - Off label use [Unknown]
  - Off label use [Unknown]
  - Off label use [Unknown]
  - Intentional product use issue [Unknown]

NARRATIVE: CASE EVENT DATE: 20220101
